FAERS Safety Report 14936986 (Version 1)
Quarter: 2018Q2

REPORT INFORMATION
  Report Type: Spontaneous
  Country: US (occurrence: US)
  Receive Date: 20180525
  Receipt Date: 20180525
  Transmission Date: 20180711
  Serious: No
  Sender: FDA-Public Use
  Company Number: US-ASTRAZENECA-2018SE56766

PATIENT
  Sex: Male
  Weight: 133.4 kg

DRUGS (1)
  1. BYDUREON BCISE [Suspect]
     Active Substance: EXENATIDE
     Indication: TYPE 2 DIABETES MELLITUS
     Route: 058
     Dates: start: 20180409

REACTIONS (4)
  - Blood glucose increased [Unknown]
  - Injection site injury [Unknown]
  - Product quality issue [Unknown]
  - Underdose [Unknown]
